FAERS Safety Report 6561741-3 (Version None)
Quarter: 2010Q1

REPORT INFORMATION
  Report Type: 
  Country: None (occurrence: None)
  Receive Date: 20100130
  Receipt Date: 20091023
  Transmission Date: 20100710
  Serious: No
  Sender: FDA-Public Use
  Company Number: US-ABBOTT-09P-163-0605222-00

PATIENT
  Sex: Female
  Weight: 74.91 kg

DRUGS (10)
  1. HUMIRA [Suspect]
     Indication: ANKYLOSING SPONDYLITIS
     Dates: start: 20050101, end: 20070101
  2. HUMIRA [Suspect]
     Dates: start: 20070101
  3. OXYCONTIN [Concomitant]
     Indication: PAIN
  4. HYDROCODONE [Concomitant]
     Indication: PAIN
     Dosage: 10/325 PRN
  5. PLAQUENIL [Concomitant]
     Indication: DRUG USE FOR UNKNOWN INDICATION
  6. BENICAR [Concomitant]
     Indication: DRUG USE FOR UNKNOWN INDICATION
     Dosage: 40/12.5
  7. SINGULAIR [Concomitant]
     Indication: ASTHMA
  8. PROVIGIL [Concomitant]
     Indication: DRUG USE FOR UNKNOWN INDICATION
     Dosage: PRN
  9. CELEBREX [Concomitant]
     Indication: DRUG USE FOR UNKNOWN INDICATION
  10. RELAFIN [Concomitant]
     Indication: DRUG USE FOR UNKNOWN INDICATION

REACTIONS (6)
  - CONDITION AGGRAVATED [None]
  - DRUG EFFECT DECREASED [None]
  - INJECTION SITE PAIN [None]
  - PAIN [None]
  - TOOTH ABSCESS [None]
  - URINARY TRACT INFECTION BACTERIAL [None]
